FAERS Safety Report 12115070 (Version 2)
Quarter: 2016Q1

REPORT INFORMATION
  Report Type: Spontaneous
  Country: TH (occurrence: TH)
  Receive Date: 20160225
  Receipt Date: 20160316
  Transmission Date: 20160526
  Serious: Yes (Hospitalization, Other)
  Sender: FDA-Public Use
  Company Number: PHHY2016TH020369

PATIENT
  Age: 50 Year
  Sex: Female

DRUGS (1)
  1. TASIGNA [Suspect]
     Active Substance: NILOTINIB
     Indication: CHRONIC MYELOID LEUKAEMIA
     Dosage: 150 MG, QID (2X2)
     Route: 065
     Dates: start: 20160209

REACTIONS (5)
  - Peripheral artery stenosis [Unknown]
  - Pallor [Unknown]
  - Raynaud^s phenomenon [Recovering/Resolving]
  - Pain in extremity [Recovering/Resolving]
  - Contusion [Recovering/Resolving]

NARRATIVE: CASE EVENT DATE: 20160212
